FAERS Safety Report 4781744-9 (Version None)
Quarter: 2005Q3

REPORT INFORMATION
  Report Type: 
  Country: None (occurrence: None)
  Receive Date: 20050927
  Receipt Date: 20050912
  Transmission Date: 20060218
  Serious: Yes (Other)
  Sender: FDA-Public Use
  Company Number: USA0509107814

PATIENT

DRUGS (1)
  1. XIGRIS [Suspect]

REACTIONS (1)
  - TOXIC EPIDERMAL NECROLYSIS [None]
